FAERS Safety Report 12051979 (Version 1)
Quarter: 2016Q1

REPORT INFORMATION
  Report Type: Spontaneous
  Country: US (occurrence: US)
  Receive Date: 20160209
  Receipt Date: 20160209
  Transmission Date: 20160526
  Serious: Yes (Other)
  Sender: FDA-Public Use
  Company Number: US-NOVOPROD-479038

PATIENT
  Age: 8 Year
  Sex: Male

DRUGS (2)
  1. NORDITROPIN [Suspect]
     Active Substance: SOMATROPIN
     Indication: GROWTH RETARDATION
     Dosage: 0.17 MG/KG, QW (AT AGE OF 12 YEARS 5 MONTHS)
     Route: 058
  2. NORDITROPIN [Suspect]
     Active Substance: SOMATROPIN
     Indication: GROWTH HORMONE DEFICIENCY
     Dosage: 0.525 MG, QD (AT AGE OF 7 YEARS 10 MONTHS)
     Route: 058

REACTIONS (1)
  - Hypoacusis [Not Recovered/Not Resolved]
